FAERS Safety Report 5935879-5 (Version None)
Quarter: 2008Q4

REPORT INFORMATION
  Report Type: 
  Country: None (occurrence: None)
  Receive Date: 20081029
  Receipt Date: 20081029
  Transmission Date: 20090506
  Serious: Yes (Other)
  Sender: FDA-Public Use
  Company Number: None

PATIENT
  Age: 50 Year
  Sex: Female
  Weight: 86.1834 kg

DRUGS (1)
  1. CHANTIX [Suspect]
     Indication: PARAESTHESIA
     Dosage: DAYS 1-3 PO
     Route: 048
     Dates: start: 20080207, end: 20080210

REACTIONS (1)
  - PARAESTHESIA [None]
